FAERS Safety Report 8229289-8 (Version None)
Quarter: 2012Q1

REPORT INFORMATION
  Report Type: 
  Country: None (occurrence: None)
  Receive Date: 20120322
  Receipt Date: 20120319
  Transmission Date: 20120608
  Serious: Yes (Death)
  Sender: FDA-Public Use
  Company Number: US-ACTELION-A-NJ2011-45802

PATIENT

DRUGS (5)
  1. COUMADIN [Concomitant]
  2. OXYGEN [Concomitant]
  3. ENBREL [Concomitant]
  4. IMURAN [Concomitant]
  5. VENTAVIS [Suspect]
     Indication: PULMONARY ARTERIAL HYPERTENSION
     Dosage: UNK
     Route: 055
     Dates: start: 20101028

REACTIONS (6)
  - DEAFNESS [None]
  - CONDITION AGGRAVATED [None]
  - PULMONARY ARTERIAL HYPERTENSION [None]
  - DEATH [None]
  - HEADACHE [None]
  - COUGH [None]
